FAERS Safety Report 9269678 (Version 2)
Quarter: 2013Q2

REPORT INFORMATION
  Report Type: Report from Study
  Country: ES (occurrence: ES)
  Receive Date: 20130503
  Receipt Date: 20130516
  Transmission Date: 20140414
  Serious: Yes (Hospitalization, Other)
  Sender: FDA-Public Use
  Company Number: ES-INCYTE CORPORATION-2013IN000831

PATIENT
  Age: 82 Year
  Sex: Female
  Weight: 77 kg

DRUGS (4)
  1. INC424 [Suspect]
     Indication: MYELOFIBROSIS
     Dosage: 20 MG, BID
     Route: 048
     Dates: start: 20130321, end: 20130417
  2. INC424 [Suspect]
     Dosage: UNK
     Route: 048
     Dates: start: 20130424
  3. AUGMENTINE [Concomitant]
  4. ATROVENT [Concomitant]

REACTIONS (3)
  - Anaemia [Recovering/Resolving]
  - Respiratory tract infection [Recovered/Resolved]
  - Respiratory failure [Recovered/Resolved]
